FAERS Safety Report 9409913 (Version 2)
Quarter: 2013Q3

REPORT INFORMATION
  Report Type: Spontaneous
  Country: FR (occurrence: FR)
  Receive Date: 20130719
  Receipt Date: 20130829
  Transmission Date: 20140515
  Serious: Yes (Other)
  Sender: FDA-Public Use
  Company Number: FR-ROCHE-1249954

PATIENT
  Sex: Female
  Weight: 45 kg

DRUGS (1)
  1. ZELBORAF [Suspect]
     Indication: METASTATIC MALIGNANT MELANOMA
     Route: 048
     Dates: start: 20130613, end: 20130628

REACTIONS (2)
  - Rash maculo-papular [Recovered/Resolved with Sequelae]
  - Face oedema [Recovered/Resolved with Sequelae]
